FAERS Safety Report 14775417 (Version 2)
Quarter: 2018Q2

REPORT INFORMATION
  Report Type: Spontaneous
  Country: US (occurrence: US)
  Receive Date: 20180418
  Receipt Date: 20180530
  Transmission Date: 20180711
  Serious: Yes (Other)
  Sender: FDA-Public Use
  Company Number: US-PFIZER INC-2018152324

PATIENT
  Sex: Female

DRUGS (1)
  1. ADVIL LIQUI-GELS [Suspect]
     Active Substance: IBUPROFEN
     Dosage: UNK

REACTIONS (6)
  - Presyncope [Unknown]
  - Aspiration [Unknown]
  - Product size issue [Unknown]
  - Dizziness [Unknown]
  - Choking [Unknown]
  - Reflexes abnormal [Unknown]
